FAERS Safety Report 4578050-4 (Version None)
Quarter: 2005Q1

REPORT INFORMATION
  Report Type: 
  Country: None (occurrence: None)
  Receive Date: 20050211
  Receipt Date: 20050117
  Transmission Date: 20050727
  Serious: Yes (Death, Life-Threatening, Hospitalization)
  Sender: FDA-Public Use
  Company Number: DE-ABBOTT-05P-062-0287204-00

PATIENT
  Age: 86 Year
  Sex: Male
  Weight: 70 kg

DRUGS (2)
  1. TARKA [Suspect]
     Indication: HYPERTENSION
     Dosage: 2MG/180MG
     Route: 048
     Dates: start: 20030514, end: 20030519
  2. MODUCREN [Interacting]
     Indication: HYPERTENSION
     Dosage: 50 MG/5 MG/20 MG
     Route: 048
     Dates: start: 19860101, end: 20030519

REACTIONS (11)
  - BRAIN OEDEMA [None]
  - BUNDLE BRANCH BLOCK LEFT [None]
  - COMA [None]
  - DRUG INTERACTION [None]
  - HYPERKALAEMIA [None]
  - HYPOTENSION [None]
  - ISCHAEMIC CEREBRAL INFARCTION [None]
  - LACTIC ACIDOSIS [None]
  - NODAL RHYTHM [None]
  - RENAL FAILURE [None]
  - RESPIRATORY ACIDOSIS [None]
